FAERS Safety Report 5346484-6 (Version None)
Quarter: 2007Q2

REPORT INFORMATION
  Report Type: 
  Country: None (occurrence: None)
  Receive Date: 20070426
  Receipt Date: 20060511
  Transmission Date: 20071010
  Serious: Yes (Other)
  Sender: FDA-Public Use
  Company Number: US-JNJFOC-20060503161

PATIENT
  Age: 87 Year
  Sex: Female

DRUGS (3)
  1. ULTRAM [Suspect]
     Indication: ARTHRALGIA
     Dosage: 1 IN 1 DAY, ORAL
     Route: 048
     Dates: start: 20020401
  2. BETOPTICS (BETAXOLOL HYDROCHLORIDE) [Concomitant]
  3. NAPROXEN [Concomitant]

REACTIONS (1)
  - VISUAL ACUITY REDUCED [None]
